FAERS Safety Report 14307164 (Version 1)
Quarter: 2017Q4

REPORT INFORMATION
  Report Type: Spontaneous
  Country: US (occurrence: US)
  Receive Date: 20171219
  Receipt Date: 20171219
  Transmission Date: 20180321
  Serious: Yes (Disabling)
  Sender: FDA-Public Use
  Company Number: None

PATIENT
  Age: 55 Year
  Sex: Female
  Weight: 83.25 kg

DRUGS (2)
  1. VENLAFAXINE [Suspect]
     Active Substance: VENLAFAXINE HYDROCHLORIDE
     Indication: DEPRESSION
     Route: 048
     Dates: start: 20170401, end: 20171120
  2. PRILOSEC [Concomitant]
     Active Substance: OMEPRAZOLE MAGNESIUM

REACTIONS (8)
  - Blood test abnormal [None]
  - Pain in extremity [None]
  - Myalgia [None]
  - Muscle twitching [None]
  - Feeling hot [None]
  - Adverse drug reaction [None]
  - Loss of personal independence in daily activities [None]
  - Hot flush [None]

NARRATIVE: CASE EVENT DATE: 20170730
